FAERS Safety Report 5278297-8 (Version None)
Quarter: 2007Q1

REPORT INFORMATION
  Report Type: 
  Country: None (occurrence: None)
  Receive Date: 20070328
  Receipt Date: 20070326
  Transmission Date: 20070707
  Serious: Yes (Hospitalization)
  Sender: FDA-Public Use
  Company Number: JP-BRISTOL-MYERS SQUIBB COMPANY-13717079

PATIENT
  Age: 73 Year
  Sex: Male

DRUGS (3)
  1. BARACLUDE [Suspect]
     Indication: HEPATITIS B
     Route: 048
     Dates: start: 20070115
  2. URINORM [Suspect]
     Route: 048
     Dates: start: 20050701
  3. CONIEL [Suspect]
     Route: 048
     Dates: start: 20050701

REACTIONS (1)
  - ATRIOVENTRICULAR BLOCK COMPLETE [None]
